FAERS Safety Report 10168072 (Version 2)
Quarter: 2014Q2

REPORT INFORMATION
  Report Type: Report from Study
  Country: PT (occurrence: PT)
  Receive Date: 20140512
  Receipt Date: 20140512
  Transmission Date: 20141212
  Serious: Yes (Death, Hospitalization, Other)
  Sender: FDA-Public Use
  Company Number: PT-BAXTER-2014BAX021598

PATIENT
  Sex: Female

DRUGS (6)
  1. EXTRANEAL 75MG/ML - SACO - 5 UNIDADE(S) - 2000 ML [Suspect]
     Indication: RENAL FAILURE CHRONIC
     Route: 033
     Dates: start: 20140414
  2. EXTRANEAL 75MG/ML - SACO - 5 UNIDADE(S) - 2000 ML [Suspect]
     Indication: PERITONEAL DIALYSIS
  3. PHYSIONEAL 40 GLUCOSE 1,36% P/V/ 13,6 MG/ML CLEAR-FLEX [Suspect]
     Indication: RENAL FAILURE CHRONIC
     Route: 033
     Dates: start: 20140414
  4. PHYSIONEAL 40 GLUCOSE 1,36% P/V/ 13,6 MG/ML CLEAR-FLEX [Suspect]
     Indication: PERITONEAL DIALYSIS
  5. PHYSIONEAL 40 GLUCOSE 2,27% P/V/ 22,7 MG/ML CLEAR-FLEX [Suspect]
     Indication: RENAL FAILURE CHRONIC
     Route: 033
     Dates: start: 20140414
  6. PHYSIONEAL 40 GLUCOSE 2,27% P/V/ 22,7 MG/ML CLEAR-FLEX [Suspect]
     Indication: PERITONEAL DIALYSIS

REACTIONS (2)
  - Respiratory tract infection [Fatal]
  - Bedridden [Unknown]
